FAERS Safety Report 4829326-4 (Version None)
Quarter: 2005Q4

REPORT INFORMATION
  Report Type: 
  Country: None (occurrence: None)
  Receive Date: 20051115
  Receipt Date: 20051115
  Transmission Date: 20060501
  Serious: Yes (Other)
  Sender: FDA-Public Use
  Company Number: None

PATIENT
  Age: 43 Year
  Sex: Male
  Weight: 78 kg

DRUGS (3)
  1. TRAZODONE [Suspect]
     Indication: INSOMNIA
     Dosage: 300MG   DAILY AT BEDTIME   PO  (DURATION: GREATER THAN ONE YEAR)
     Route: 048
  2. TRAZODONE [Suspect]
     Indication: MAJOR DEPRESSION
     Dosage: 300MG   DAILY AT BEDTIME   PO  (DURATION: GREATER THAN ONE YEAR)
     Route: 048
  3. SEROQUEL [Suspect]
     Indication: MAJOR DEPRESSION
     Dosage: VARIABLE    VARIABLE   PO  (DURATION: GREATER THAN ONE YEAR)
     Route: 048

REACTIONS (1)
  - PRIAPISM [None]
